FAERS Safety Report 20784397 (Version 2)
Quarter: 2022Q2

REPORT INFORMATION
  Report Type: Report from Study
  Country: US (occurrence: US)
  Receive Date: 20220504
  Receipt Date: 20220613
  Transmission Date: 20220720
  Serious: Yes (Hospitalization)
  Sender: FDA-Public Use
  Company Number: US-TAKEDA-2022TUS023995

PATIENT
  Sex: Female
  Weight: 87 kg

DRUGS (3)
  1. MARIBAVIR [Suspect]
     Active Substance: MARIBAVIR
     Indication: Cytomegalovirus infection
     Dosage: 2 DOSAGE FORM, BID
     Route: 048
     Dates: start: 20220325
  2. MARIBAVIR [Suspect]
     Active Substance: MARIBAVIR
     Dosage: 200 MILLIGRAM, BID
     Route: 048
     Dates: start: 20220325
  3. MARIBAVIR [Suspect]
     Active Substance: MARIBAVIR
     Dosage: 400 MILLIGRAM, BID
     Route: 048
     Dates: start: 20220410

REACTIONS (9)
  - Adverse drug reaction [Unknown]
  - Fluid retention [Unknown]
  - Oedema peripheral [Unknown]
  - Pain in extremity [Unknown]
  - Dyspnoea [Unknown]
  - Memory impairment [Unknown]
  - Cardiac disorder [Unknown]
  - Renal disorder [Unknown]
  - Product dose omission issue [Unknown]
